FAERS Safety Report 7562876-9 (Version None)
Quarter: 2011Q2

REPORT INFORMATION
  Report Type: 
  Country: None (occurrence: None)
  Receive Date: 20110622
  Receipt Date: 20110614
  Transmission Date: 20111010
  Serious: Yes (Death, Hospitalization, Disabling)
  Sender: FDA-Public Use
  Company Number: FR-PFIZER INC-2011114703

PATIENT
  Age: 68 Year
  Sex: Female
  Weight: 55 kg

DRUGS (11)
  1. CAMPTOSAR [Suspect]
     Indication: GLIOBLASTOMA
     Dosage: 190 MG, UNK
     Route: 042
     Dates: start: 20100825, end: 20110505
  2. MEDROL [Concomitant]
     Indication: BRAIN OEDEMA
     Dosage: UNK
     Route: 048
     Dates: start: 20100701
  3. ACETAMINOPHEN [Concomitant]
     Indication: PAIN
     Dosage: UNK
     Route: 048
     Dates: start: 20100701
  4. SPASFON [Concomitant]
     Indication: PROPHYLAXIS
     Dosage: UNK
     Route: 048
     Dates: start: 20110201
  5. VALSARTAN [Concomitant]
     Indication: HYPERTENSION
     Dosage: UNK
     Route: 048
     Dates: start: 20101101
  6. LIORESAL [Concomitant]
     Indication: MUSCLE SPASTICITY
     Dosage: UNK
     Route: 048
     Dates: start: 20110421
  7. MOTILIUM [Concomitant]
     Indication: PROPHYLAXIS
     Dosage: UNK
     Route: 048
     Dates: start: 20110407
  8. POTASSIUM CHLORIDE [Concomitant]
     Indication: PROPHYLAXIS
     Dosage: UNK
     Route: 048
     Dates: start: 20101101
  9. AVASTIN [Suspect]
     Indication: GLIOBLASTOMA
     Dosage: 580 MG, UNK
     Route: 042
     Dates: start: 20100825, end: 20110505
  10. LEXOMIL [Concomitant]
     Indication: INSOMNIA
     Dosage: UNK
     Route: 048
     Dates: start: 20100701
  11. LOVENOX [Concomitant]
     Indication: PROPHYLAXIS
     Dosage: UNK
     Route: 058
     Dates: start: 20101101

REACTIONS (4)
  - LUNG DISORDER [None]
  - NEUROLOGICAL DECOMPENSATION [None]
  - GLIOBLASTOMA [None]
  - DISEASE PROGRESSION [None]
